FAERS Safety Report 4800205-1 (Version None)
Quarter: 2005Q4

REPORT INFORMATION
  Report Type: 
  Country: None (occurrence: None)
  Receive Date: 20051017
  Receipt Date: 20051007
  Transmission Date: 20060501
  Serious: Yes (Disabling)
  Sender: FDA-Public Use
  Company Number: FR-ABBOTT-05P-056-0313226-00

PATIENT
  Sex: Male
  Weight: 81 kg

DRUGS (1)
  1. LIPANTHYL [Suspect]
     Indication: HYPERCHOLESTEROLAEMIA
     Route: 048
     Dates: start: 19920101, end: 20050501

REACTIONS (3)
  - MUSCLE STRAIN [None]
  - MUSCULAR WEAKNESS [None]
  - MYALGIA [None]
